FAERS Safety Report 8677411 (Version 2)
Quarter: 2012Q4

REPORT INFORMATION
  Report Type: 
  Country: CL (occurrence: CL)
  Receive Date: 20120723
  Receipt Date: 20121001
  Transmission Date: 20130627
  Serious: Yes (Other)
  Sender: FDA-Public Use
  Company Number: PHHY2012CL061822

PATIENT
  Sex: Female

DRUGS (3)
  1. GLIVEC [Suspect]
     Indication: GASTROINTESTINAL STROMAL TUMOUR
     Dosage: 400 mg, UNK
     Route: 048
     Dates: start: 201202
  2. GLIVEC [Suspect]
     Dosage: 400 mg, UNK
     Route: 048
  3. ESOMEPRAZOLE [Concomitant]
     Indication: GASTRIC HAEMORRHAGE
     Dosage: 20 mg, per day
     Route: 048

REACTIONS (2)
  - Neoplasm [Unknown]
  - Gastric haemorrhage [Recovered/Resolved]
